FAERS Safety Report 8435191-9 (Version None)
Quarter: 2012Q2

REPORT INFORMATION
  Report Type: 
  Country: None (occurrence: None)
  Receive Date: 20120614
  Receipt Date: 20120611
  Transmission Date: 20120825
  Serious: Yes (Hospitalization)
  Sender: FDA-Public Use
  Company Number: PHEH2012US011694

PATIENT
  Sex: Female

DRUGS (2)
  1. RITALIN [Suspect]
  2. REBIF [Suspect]
     Dosage: 44 UG 3 IN 1 WEEK
     Dates: start: 20090101

REACTIONS (1)
  - PARANOIA [None]
